FAERS Safety Report 7221512-1 (Version None)
Quarter: 2011Q1

REPORT INFORMATION
  Report Type: 
  Country: None (occurrence: None)
  Receive Date: 20110112
  Receipt Date: 20110104
  Transmission Date: 20110831
  Serious: Yes (Hospitalization)
  Sender: FDA-Public Use
  Company Number: PHHY2011US00809

PATIENT
  Sex: Female

DRUGS (3)
  1. STALEVO 100 [Suspect]
     Indication: PARKINSON'S DISEASE
     Dosage: 1 DF, 5QD
     Route: 048
     Dates: start: 20060901
  2. MIRAPEX [Concomitant]
     Dosage: UNK
  3. LABETALOL [Concomitant]
     Dosage: UNK

REACTIONS (4)
  - CORONARY ARTERY DISSECTION [None]
  - MYOCARDIAL INFARCTION [None]
  - CHEST PAIN [None]
  - CARDIAC ENZYMES INCREASED [None]
